FAERS Safety Report 6897854-6 (Version None)
Quarter: 2010Q3

REPORT INFORMATION
  Report Type: 
  Country: None (occurrence: None)
  Receive Date: 20100802
  Receipt Date: 20070727
  Transmission Date: 20110219
  Serious: No
  Sender: FDA-Public Use
  Company Number: US-PFIZER INC-2007063658

PATIENT
  Sex: Female
  Weight: 65.8 kg

DRUGS (6)
  1. LYRICA [Suspect]
     Indication: NEURALGIA
     Dates: start: 20070101, end: 20070101
  2. LYRICA [Suspect]
     Dates: start: 20070101
  3. LIPITOR [Concomitant]
  4. CELEBREX [Concomitant]
  5. AVALIDE [Concomitant]
  6. TOPROL-XL [Concomitant]

REACTIONS (3)
  - ASTHENIA [None]
  - NAUSEA [None]
  - PYREXIA [None]
